FAERS Safety Report 5305653-1 (Version None)
Quarter: 2007Q2

REPORT INFORMATION
  Report Type: 
  Country: None (occurrence: None)
  Receive Date: 20070416
  Receipt Date: 20070329
  Transmission Date: 20071010
  Serious: Yes (Death)
  Sender: FDA-Public Use
  Company Number: A-US2004-08333

PATIENT
  Age: 52 Year
  Sex: Female
  Weight: 79 kg

DRUGS (7)
  1. TRACLEER [Suspect]
     Indication: PULMONARY HYPERTENSION
     Dosage: 62.5 MG, BID, ORAL
     Route: 048
     Dates: start: 20040930, end: 20041027
  2. RALOXIFENE HCL [Concomitant]
  3. OMEPRAZOLE [Concomitant]
  4. CALTRATE (CALCIUM CARBONATE) [Concomitant]
  5. LACTULOSE [Concomitant]
  6. WARFARIN SODIUM [Concomitant]
  7. RHINOCORT [Concomitant]

REACTIONS (7)
  - ARRHYTHMIA [None]
  - DISEASE PROGRESSION [None]
  - ELECTROLYTE IMBALANCE [None]
  - PULMONARY HYPERTENSION [None]
  - RENAL FAILURE [None]
  - SCLERODERMA [None]
  - SUDDEN DEATH [None]
